FAERS Safety Report 21690934 (Version 1)
Quarter: 2022Q4

REPORT INFORMATION
  Report Type: Report from Study
  Country: US (occurrence: US)
  Receive Date: 20221207
  Receipt Date: 20221207
  Transmission Date: 20230112
  Serious: No
  Sender: FDA-Public Use
  Company Number: US-ABBVIE-4194633

PATIENT
  Age: 17 Year
  Sex: Male
  Weight: 74.389 kg

DRUGS (4)
  1. RINVOQ [Suspect]
     Active Substance: UPADACITINIB
     Indication: Eczema
     Route: 048
     Dates: start: 202209
  2. Citerizine [Concomitant]
     Indication: Hypersensitivity
     Dosage: 10 MILLIGRAM
  3. VITAMIN C [Concomitant]
     Active Substance: ASCORBIC ACID
     Indication: Supplementation therapy
  4. ALBUTEROL [Concomitant]
     Active Substance: ALBUTEROL
     Indication: Productive cough

REACTIONS (1)
  - Productive cough [Recovering/Resolving]

NARRATIVE: CASE EVENT DATE: 20221105
